FAERS Safety Report 20851988 (Version 2)
Quarter: 2022Q2

REPORT INFORMATION
  Report Type: Spontaneous
  Country: HR (occurrence: HR)
  Receive Date: 20220520
  Receipt Date: 20220601
  Transmission Date: 20220720
  Serious: Yes (Other)
  Sender: FDA-Public Use
  Company Number: HR-BRISTOL-MYERS SQUIBB COMPANY-2022-042122

PATIENT
  Age: 71 Year
  Sex: Female
  Weight: 63 kg

DRUGS (25)
  1. ELIQUIS [Suspect]
     Active Substance: APIXABAN
     Indication: Product used for unknown indication
     Route: 065
  2. INDAPAMIDE [Suspect]
     Active Substance: INDAPAMIDE
     Indication: Product used for unknown indication
     Dosage: 2.5 MG
  3. INDAPAMIDE [Suspect]
     Active Substance: INDAPAMIDE
     Dosage: 1.25 MG
     Route: 065
  4. INDAPAMIDE [Suspect]
     Active Substance: INDAPAMIDE
     Route: 065
  5. INDAPAMIDE [Suspect]
     Active Substance: INDAPAMIDE
     Route: 065
  6. PERINDOPRIL [Suspect]
     Active Substance: PERINDOPRIL
     Indication: Product used for unknown indication
     Dosage: 5 MG
     Route: 065
  7. PERINDOPRIL [Suspect]
     Active Substance: PERINDOPRIL
     Dosage: 5 MG
     Route: 065
  8. PERINDOPRIL [Suspect]
     Active Substance: PERINDOPRIL
     Dosage: 10 MG
     Route: 065
  9. PERINDOPRIL [Suspect]
     Active Substance: PERINDOPRIL
     Route: 065
  10. PERINDOPRIL [Suspect]
     Active Substance: PERINDOPRIL
     Route: 065
  11. PERINDOPRIL [Suspect]
     Active Substance: PERINDOPRIL
     Route: 065
  12. METOPROLOL [Suspect]
     Active Substance: METOPROLOL
     Indication: Product used for unknown indication
     Dosage: 25 MG
     Route: 065
  13. METOPROLOL [Suspect]
     Active Substance: METOPROLOL
     Dosage: 50 MG
     Route: 065
  14. METOPROLOL [Suspect]
     Active Substance: METOPROLOL
     Route: 065
  15. METOPROLOL [Suspect]
     Active Substance: METOPROLOL
     Route: 065
  16. PROPAFENONE [Suspect]
     Active Substance: PROPAFENONE
     Indication: Product used for unknown indication
     Dosage: 150 MG, 2X/DAY
     Route: 065
  17. PROPAFENONE [Suspect]
     Active Substance: PROPAFENONE
     Route: 065
  18. AMLODIPINE BESYLATE [Suspect]
     Active Substance: AMLODIPINE BESYLATE
     Indication: Product used for unknown indication
     Route: 065
  19. AMLODIPINE BESYLATE [Suspect]
     Active Substance: AMLODIPINE BESYLATE
     Route: 065
  20. AMLODIPINE BESYLATE [Suspect]
     Active Substance: AMLODIPINE BESYLATE
     Route: 065
  21. PACLITAXEL [Concomitant]
     Active Substance: PACLITAXEL
     Indication: Product used for unknown indication
     Route: 065
  22. SOTALOL [Concomitant]
     Active Substance: SOTALOL
     Dosage: 2X40 MG
     Route: 065
  23. SOTALOL [Concomitant]
     Active Substance: SOTALOL
     Indication: Product used for unknown indication
     Dosage: 2X40 MG
     Route: 065
  24. AMIODARONE [Concomitant]
     Active Substance: AMIODARONE
     Dosage: 3X1,2X1 AND THEN 1X1 TBL
     Route: 065
  25. AMIODARONE [Concomitant]
     Active Substance: AMIODARONE
     Indication: Product used for unknown indication
     Dosage: 3X1,2X1 AND THEN 1X1 TBL
     Route: 065

REACTIONS (5)
  - Breast cancer [Unknown]
  - Weight decreased [Unknown]
  - Sinus node dysfunction [Unknown]
  - Laboratory test abnormal [Unknown]
  - Atrial fibrillation [Unknown]

NARRATIVE: CASE EVENT DATE: 20210101
